FAERS Safety Report 21777347 (Version 1)
Quarter: 2022Q4

REPORT INFORMATION
  Report Type: Spontaneous
  Country: US (occurrence: US)
  Receive Date: 20221226
  Receipt Date: 20221226
  Transmission Date: 20230113
  Serious: No
  Sender: FDA-Public Use
  Company Number: US-COLLEGIUM PHARMACEUTICAL, INC.-2022CGM00428

PATIENT
  Age: 78 Year
  Sex: Female
  Weight: 65.77 kg

DRUGS (9)
  1. NUCYNTA [Suspect]
     Active Substance: TAPENTADOL HYDROCHLORIDE
     Dosage: UNK
     Dates: end: 2021
  2. SAVELLA [Suspect]
     Active Substance: MILNACIPRAN HYDROCHLORIDE
     Dosage: UNK
     Dates: end: 2021
  3. EPHEDRINE [Suspect]
     Active Substance: EPHEDRINE
  4. AMITRIPTYLINE [Suspect]
     Active Substance: AMITRIPTYLINE
     Dosage: UNK
     Dates: end: 2021
  5. LISINOPRIL [Concomitant]
     Active Substance: LISINOPRIL
     Dosage: UNK MG
     Dates: end: 2021
  6. HYDROCHLOROTHIAZIDE [Concomitant]
     Active Substance: HYDROCHLOROTHIAZIDE
  7. ORPHENADRINE [Concomitant]
     Active Substance: ORPHENADRINE
  8. TYLENOL [Concomitant]
     Active Substance: ACETAMINOPHEN
     Dosage: ^OCCASIONALLY^
  9. CODEINE [Concomitant]
     Active Substance: CODEINE
     Dosage: ^OCCASIONALLY^

REACTIONS (3)
  - Hunger [Recovered/Resolved]
  - Constipation [Recovered/Resolved]
  - Therapy interrupted [Recovered/Resolved]

NARRATIVE: CASE EVENT DATE: 20210101
